FAERS Safety Report 16070397 (Version 14)
Quarter: 2020Q3

REPORT INFORMATION
  Report Type: Spontaneous
  Country: JP (occurrence: JP)
  Receive Date: 20190314
  Receipt Date: 20200810
  Transmission Date: 20201102
  Serious: Yes (Life-Threatening, Hospitalization, Other)
  Sender: FDA-Public Use
  Company Number: JP-ROCHE-2276109

PATIENT
  Age: 25 Year
  Sex: Female
  Weight: 33 kg

DRUGS (42)
  1. SERENACE [Concomitant]
     Active Substance: HALOPERIDOL
     Dosage: DOSAGE IS UNCERTAIN.
     Route: 041
  2. OMEPRAZOLE SODIUM [Concomitant]
     Active Substance: OMEPRAZOLE SODIUM
     Dosage: DOSAGE IS UNCERTAIN.
     Route: 065
  3. PRIMPERAN [Concomitant]
     Active Substance: METOCLOPRAMIDE HYDROCHLORIDE
     Dosage: DOSAGE IS UNCERTAIN.
     Route: 065
  4. SOLU?MEDROL [Concomitant]
     Active Substance: METHYLPREDNISOLONE SODIUM SUCCINATE
     Dosage: DOSAGE IS UNCERTAIN.
     Route: 042
  5. SODIUM CHLORIDE. [Concomitant]
     Active Substance: SODIUM CHLORIDE
     Dosage: DOSAGE IS UNCERTAIN.
     Route: 065
  6. WASSERTROL [Concomitant]
     Dosage: DOSAGE IS UNCERTAIN.
     Route: 065
  7. FINIBAX [Concomitant]
     Active Substance: DORIPENEM MONOHYDRATE
     Dosage: TOTAL DOSE:5V
     Route: 041
  8. MEDLENIK [Concomitant]
     Active Substance: CUPRIC SULFATE\FERRIC CHLORIDE\MANGANESE CHLORIDE\POTASSIUM IODIDE\ZINC SULFATE
     Dosage: TOTAL DOSE:2A
     Route: 042
  9. KN NO.1 [Concomitant]
     Dosage: DOSAGE IS UNCERTAIN.
     Route: 065
  10. SODIUM PHOSPHATE [Concomitant]
     Active Substance: SODIUM PHOSPHATE
     Dosage: TOTAL DOSE:1.5A
     Route: 042
  11. VANCOMYCIN HYDROCHLORIDE. [Concomitant]
     Active Substance: VANCOMYCIN HYDROCHLORIDE
     Dosage: TOTAL DOSE:4.5V
     Route: 042
  12. KCL [Concomitant]
     Active Substance: POTASSIUM CHLORIDE
     Dosage: TOTAL DOSE:3A
     Route: 042
  13. OXIFAST [Concomitant]
     Active Substance: OXYCODONE
     Dosage: DOSAGE IS UNCERTAIN.
     Route: 065
  14. DEXART [Concomitant]
     Active Substance: DEXAMETHASONE SODIUM PHOSPHATE
     Dosage: DOSAGE IS UNCERTAIN.
     Route: 065
  15. CUBICIN [Concomitant]
     Active Substance: DAPTOMYCIN
     Dosage: DOSAGE IS UNCERTAIN.
     Route: 042
  16. ACTEMRA [Suspect]
     Active Substance: TOCILIZUMAB
     Indication: OFF LABEL USE
  17. PLATELETS [Concomitant]
     Active Substance: HUMAN PLATELET, ALLOGENIC
     Dosage: TOTAL DOSE:20U
     Route: 041
  18. INOVAN (JAPAN) [Concomitant]
     Dosage: DOSAGE IS UNCERTAIN.
     Route: 065
  19. GAMMAGARD [Concomitant]
     Active Substance: HUMAN IMMUNOGLOBULIN G
     Dosage: TOTAL DOSE:2V
     Route: 042
  20. GASTER [Concomitant]
     Active Substance: FAMOTIDINE
     Dosage: TOTAL DOSE:2A
     Route: 042
  21. ACTEMRA [Suspect]
     Active Substance: TOCILIZUMAB
     Indication: CYTOKINE RELEASE SYNDROME
     Dosage: ON 06/MAR/2019, RECEIVED MOST RECENT DOSE OF TOCILIZUMAB
     Route: 042
     Dates: start: 20190222
  22. E KEPPRA [Concomitant]
     Active Substance: LEVETIRACETAM
     Dosage: TOTAL DOSE:9V
     Route: 041
  23. ACELIO [Concomitant]
     Active Substance: ACETAMINOPHEN
     Dosage: TOTAL DOSE:0.5V
     Route: 042
  24. MEYLON [Concomitant]
     Active Substance: SODIUM BICARBONATE
     Dosage: DOSAGE IS UNCERTAIN.
     Route: 042
  25. TEICOPLANIN [Concomitant]
     Active Substance: TEICOPLANIN
     Dosage: DOSAGE IS UNCERTAIN.
     Route: 065
  26. YD SOLITA T NO.3 [Concomitant]
     Dosage: DOSAGE IS UNCERTAIN.
     Route: 065
  27. PROGRAF [Concomitant]
     Active Substance: TACROLIMUS
     Dosage: TOTAL DOSE:0.2A
     Route: 041
  28. PREVYMIS [Concomitant]
     Active Substance: LETERMOVIR
     Dosage: TOTAL DOSE:2V
     Route: 041
  29. KETALAR [Concomitant]
     Active Substance: KETAMINE HYDROCHLORIDE
     Dosage: DOSAGE IS UNCERTAIN.
     Route: 042
  30. HUMULIN R [Concomitant]
     Active Substance: INSULIN HUMAN
     Dosage: TOTAL DOSE:0.15V
     Route: 041
  31. NEORESTAR [Concomitant]
     Active Substance: CHLORPHENIRAMINE MALEATE
     Dosage: TOTAL DOSE:2A
     Route: 042
  32. FILGRASTIM BIOSIMILAR 1 [Concomitant]
     Active Substance: FILGRASTIM
     Dosage: DOSAGE IS UNCERTAIN.
     Route: 065
  33. LASIX [Concomitant]
     Active Substance: FUROSEMIDE
     Dosage: DOSAGE IS UNCERTAIN.
     Route: 065
  34. AMBISOME [Concomitant]
     Active Substance: AMPHOTERICIN B
     Dosage: TOTAL DOSE:4V
     Route: 041
  35. PREDONINE [Concomitant]
     Active Substance: PREDNISOLONE
     Dosage: TOTAL DOSE:2A
     Route: 042
  36. SERENACE [Concomitant]
     Active Substance: HALOPERIDOL
     Dosage: TOTAL DOSE:1A
     Route: 041
  37. HUMAN RED BLOOD CELLS [Concomitant]
     Active Substance: HUMAN RED BLOOD CELL
     Dosage: DOSAGE IS UNCERTAIN.
     Route: 065
  38. ROPION [Concomitant]
     Active Substance: FLURBIPROFEN AXETIL
     Dosage: DOSAGE IS UNCERTAIN.
     Route: 042
  39. NEOPHAGEN C [Concomitant]
     Dosage: TOTAL DOSE:2DF
     Route: 042
  40. CEFEPIME DIHYDROCHLORIDE [Concomitant]
     Active Substance: CEFEPIME HYDROCHLORIDE
     Dosage: DOSAGE IS UNCERTAIN.
     Route: 042
  41. AMIPAREN [Concomitant]
     Active Substance: AMINO ACIDS, SOURCE UNSPECIFIED
     Dosage: DOSAGE IS UNCERTAIN.
     Route: 065
  42. ALBUMINE [Concomitant]
     Active Substance: ALBUMIN HUMAN
     Dosage: TOTAL DOSE:2V
     Route: 042

REACTIONS (15)
  - Liver disorder [Not Recovered/Not Resolved]
  - Hypoalbuminaemia [Recovered/Resolved]
  - Intentional product use issue [Unknown]
  - Off label use [Unknown]
  - Disseminated intravascular coagulation [Recovered/Resolved]
  - Respiratory failure [Not Recovered/Not Resolved]
  - Febrile neutropenia [Unknown]
  - Candida infection [Not Recovered/Not Resolved]
  - Nervous system disorder [Recovering/Resolving]
  - Meningitis [Unknown]
  - Renal impairment [Recovering/Resolving]
  - Bacteraemia [Recovered/Resolved]
  - Pancytopenia [Recovering/Resolving]
  - Encephalitis [Unknown]
  - Folliculitis [Recovered/Resolved]

NARRATIVE: CASE EVENT DATE: 20190224
